FAERS Safety Report 5793643-4 (Version None)
Quarter: 2008Q2

REPORT INFORMATION
  Report Type: 
  Country: None (occurrence: None)
  Receive Date: 20080627
  Receipt Date: 20080613
  Transmission Date: 20081010
  Serious: Yes (Hospitalization)
  Sender: FDA-Public Use
  Company Number: DE-JNJFOC-20080603274

PATIENT
  Age: 44 Year
  Sex: Female

DRUGS (12)
  1. RISPERDAL [Suspect]
     Route: 048
  2. RISPERDAL [Suspect]
     Route: 048
  3. RISPERDAL [Suspect]
     Indication: DEPRESSION
     Dosage: 1 MG - 4 MG
     Route: 048
  4. REMERGIL [Concomitant]
     Route: 048
  5. REMERGIL [Concomitant]
     Route: 048
  6. REMERGIL [Concomitant]
     Indication: DRUG USE FOR UNKNOWN INDICATION
     Route: 048
  7. LEVOTHYROXINE SODIUM [Concomitant]
     Indication: DRUG USE FOR UNKNOWN INDICATION
     Route: 048
  8. ZOPICLON [Concomitant]
     Indication: DRUG USE FOR UNKNOWN INDICATION
     Route: 048
  9. CITALOPRAM HYDROBROMIDE [Concomitant]
  10. IBUROFEN [Concomitant]
  11. DOXEPIN HCL [Concomitant]
  12. SIMVASTATIN [Concomitant]
     Route: 048

REACTIONS (3)
  - BREAST ENLARGEMENT [None]
  - GALACTORRHOEA [None]
  - HYPERPROLACTINAEMIA [None]
